FAERS Safety Report 23830521 (Version 1)
Quarter: 2024Q2

REPORT INFORMATION
  Report Type: Spontaneous
  Country: US (occurrence: None)
  Receive Date: 20240507
  Receipt Date: 20240507
  Transmission Date: 20240716
  Serious: Yes (Hospitalization)
  Sender: FDA-Public Use
  Company Number: None

PATIENT
  Age: 30 Year
  Sex: Male
  Weight: 75.3 kg

DRUGS (2)
  1. ARIPIPRAZOLE [Suspect]
     Active Substance: ARIPIPRAZOLE
     Indication: Bipolar disorder
     Dosage: FREQUENCY : TWICE A DAY;?
     Route: 048
     Dates: start: 20220922, end: 20220927
  2. DIAZEPAM [Suspect]
     Active Substance: DIAZEPAM
     Indication: Affective disorder
     Dosage: FREQUENCY : AT BEDTIME;?
     Route: 048
     Dates: start: 20220927, end: 20220929

REACTIONS (8)
  - Aggression [None]
  - Agitation [None]
  - Insomnia [None]
  - Visual impairment [None]
  - Patient elopement [None]
  - Excessive sexual fantasies [None]
  - Compulsive sexual behaviour [None]
  - Delirium [None]

NARRATIVE: CASE EVENT DATE: 20220927
